FAERS Safety Report 9533228 (Version 1)
Quarter: 2013Q2

REPORT INFORMATION
  Report Type: Spontaneous
  Country: US (occurrence: None)
  Receive Date: 20130507
  Receipt Date: 20130507
  Transmission Date: 20140414
  Serious: Yes (Other)
  Sender: FDA-Public Use
  Company Number: PHEH2013US003005

PATIENT
  Sex: Female

DRUGS (1)
  1. AFINITOR [Suspect]
     Indication: BREAST CANCER
     Dosage: 10 MG, DAILY, ORAL
     Route: 048
     Dates: start: 20120201

REACTIONS (4)
  - Painful respiration [None]
  - Dyspnoea [None]
  - Chest pain [None]
  - Pyrexia [None]
